FAERS Safety Report 6528507-1 (Version None)
Quarter: 2009Q4

REPORT INFORMATION
  Report Type: 
  Country: None (occurrence: None)
  Receive Date: 20091230
  Receipt Date: 20091209
  Transmission Date: 20100525
  Serious: Yes (Hospitalization)
  Sender: FDA-Public Use
  Company Number: 459501

PATIENT
  Age: 3 Year
  Sex: Male

DRUGS (10)
  1. VINCRISTINE [Suspect]
     Indication: NEUROBLASTOMA
     Dosage: INTRAVENOUS
     Route: 042
     Dates: start: 20080929, end: 20081003
  2. (ENDOXAN /00021101/) [Suspect]
     Indication: NEUROBLASTOMA
     Dosage: INTRAVENOUS
     Route: 042
     Dates: start: 20080929, end: 20081003
  3. DOXORUBICIN HCL [Suspect]
     Indication: NEUROBLASTOMA
     Dosage: INTRAVENOUS
     Route: 042
     Dates: start: 20081002, end: 20081009
  4. SECTRAL [Concomitant]
  5. NICARDIPINE HCL [Concomitant]
  6. (TRIATEC /00885601/) [Concomitant]
  7. KAYEXALATE [Concomitant]
  8. SODIUM BICARBONATE [Concomitant]
  9. (ONEALFA) [Concomitant]
  10. BACTRIM [Concomitant]

REACTIONS (4)
  - APLASIA [None]
  - PALLOR [None]
  - STAPHYLOCOCCAL SEPSIS [None]
  - TACHYCARDIA [None]
